FAERS Safety Report 6420215-0 (Version None)
Quarter: 2009Q4

REPORT INFORMATION
  Report Type: 
  Country: None (occurrence: None)
  Receive Date: 20091029
  Receipt Date: 20091016
  Transmission Date: 20100525
  Serious: Yes (Other)
  Sender: FDA-Public Use
  Company Number: PHHY2009JP13651

PATIENT
  Sex: Male
  Weight: 50 kg

DRUGS (9)
  1. ZOMETA [Suspect]
     Indication: MULTIPLE MYELOMA
     Dosage: 4 MG (PER ADMINISTRATION)
     Route: 042
     Dates: start: 20071218, end: 20090217
  2. PREDONINE [Concomitant]
     Indication: MULTIPLE MYELOMA
     Dosage: 30 MG, UNK
     Route: 048
     Dates: start: 20071127, end: 20090227
  3. ALKERAN [Concomitant]
     Indication: MULTIPLE MYELOMA
     Dosage: 6 MG, UNK
     Route: 048
     Dates: start: 20071127, end: 20090217
  4. LANSOPRAZOLE [Concomitant]
     Indication: REFLUX OESOPHAGITIS
     Dosage: 30 MG, UNK
     Route: 048
  5. FOIPAN [Concomitant]
     Indication: PANCREATITIS
     Dosage: 400 MG, UNK
     Route: 048
  6. ITOROL [Concomitant]
     Indication: ANGINA PECTORIS
     Dosage: 40 MG, UNK
     Route: 048
  7. ASPIRIN [Concomitant]
     Indication: ANGINA PECTORIS
     Dosage: 100 MG, UNK
     Route: 048
  8. LOXONIN [Concomitant]
     Indication: BACK PAIN
     Dosage: 120 MG, UNK
     Route: 048
  9. BAKTAR [Concomitant]
     Indication: ANTIFUNGAL PROPHYLAXIS
     Dosage: 1 G, UNK
     Route: 048
     Dates: start: 20090106

REACTIONS (10)
  - BLOOD CREATININE INCREASED [None]
  - BLOOD GLUCOSE INCREASED [None]
  - BLOOD LACTATE DEHYDROGENASE INCREASED [None]
  - OSTEONECROSIS [None]
  - PAIN IN JAW [None]
  - PLATELET COUNT DECREASED [None]
  - PURULENT DISCHARGE [None]
  - SEQUESTRECTOMY [None]
  - TOOTH EXTRACTION [None]
  - TOOTHACHE [None]
